FAERS Safety Report 11033984 (Version 2)
Quarter: 2015Q2

REPORT INFORMATION
  Report Type: Spontaneous
  Country: US (occurrence: US)
  Receive Date: 20150415
  Receipt Date: 20150421
  Transmission Date: 20150821
  Serious: No
  Sender: FDA-Public Use
  Company Number: US-009507513-1504USA015081

PATIENT
  Age: 23 Year
  Sex: Female
  Weight: 90.34 kg

DRUGS (1)
  1. NEXPLANON [Suspect]
     Active Substance: ETONOGESTREL
     Indication: CONTRACEPTION
     Dosage: UNK
     Route: 059
     Dates: start: 20130205

REACTIONS (8)
  - Muscle spasms [Unknown]
  - Nausea [Unknown]
  - Product quality issue [Unknown]
  - Pregnancy test false positive [Recovered/Resolved]
  - Limb injury [Unknown]
  - Vaginal haemorrhage [Recovered/Resolved]
  - Amenorrhoea [Recovered/Resolved]
  - Device dislocation [Unknown]

NARRATIVE: CASE EVENT DATE: 20130205
